FAERS Safety Report 6803239-0 (Version None)
Quarter: 2010Q2

REPORT INFORMATION
  Report Type: 
  Country: None (occurrence: None)
  Receive Date: 20100628
  Receipt Date: 20100504
  Transmission Date: 20101027
  Serious: Yes (Disabling)
  Sender: FDA-Public Use
  Company Number: D0067309A

PATIENT
  Sex: Female
  Weight: 148 kg

DRUGS (6)
  1. ATMADISC FORTE [Suspect]
     Indication: ASTHMA
     Dosage: 2PUFF TWICE PER DAY
     Route: 055
     Dates: start: 20080101
  2. ANTIBIOTIC [Suspect]
     Indication: LARYNGITIS
     Route: 065
  3. ATROVENT [Concomitant]
     Indication: ASTHMA
     Route: 055
     Dates: start: 19900101
  4. BRONCHO SPRAY [Concomitant]
     Route: 055
  5. ALLERGOSPASMIN [Concomitant]
     Route: 065
  6. SALBUTAMOL [Concomitant]
     Indication: ASTHMA
     Route: 055
     Dates: start: 19900101

REACTIONS (4)
  - APHONIA [None]
  - DRUG HYPERSENSITIVITY [None]
  - DYSPHONIA [None]
  - LARYNGITIS [None]
